FAERS Safety Report 7002052-1 (Version None)
Quarter: 2010Q3

REPORT INFORMATION
  Report Type: 
  Country: None (occurrence: None)
  Receive Date: 20100920
  Receipt Date: 20100910
  Transmission Date: 20110219
  Serious: Yes (Hospitalization, Other)
  Sender: FDA-Public Use
  Company Number: US-AMGEN-QUU375625

PATIENT
  Sex: Male

DRUGS (2)
  1. ENBREL [Suspect]
     Indication: RHEUMATOID ARTHRITIS
     Route: 058
     Dates: start: 19991201
  2. METHOTREXATE [Concomitant]

REACTIONS (12)
  - BACK PAIN [None]
  - DEVICE RELATED INFECTION [None]
  - INFECTION [None]
  - INGUINAL HERNIA [None]
  - INJECTION SITE ERYTHEMA [None]
  - INJECTION SITE INDURATION [None]
  - INJECTION SITE PRURITUS [None]
  - MYOCARDIAL INFARCTION [None]
  - PNEUMONIA [None]
  - PYREXIA [None]
  - RHEUMATOID ARTHRITIS [None]
  - SPINAL DECOMPRESSION [None]
